FAERS Safety Report 25083157 (Version 1)
Quarter: 2025Q1

REPORT INFORMATION
  Report Type: Spontaneous
  Country: US (occurrence: US)
  Receive Date: 20250317
  Receipt Date: 20250317
  Transmission Date: 20250408
  Serious: Yes (Hospitalization)
  Sender: STRIDES
  Company Number: US-STRIDES ARCOLAB LIMITED-2025SP003350

PATIENT

DRUGS (14)
  1. LOPERAMIDE HYDROCHLORIDE [Suspect]
     Active Substance: LOPERAMIDE HYDROCHLORIDE
     Indication: Diarrhoea
     Route: 065
  2. SOTORASIB [Concomitant]
     Active Substance: SOTORASIB
     Indication: K-ras gene mutation
     Route: 065
  3. SOTORASIB [Concomitant]
     Active Substance: SOTORASIB
     Indication: Non-small cell lung cancer metastatic
     Route: 065
  4. SOTORASIB [Concomitant]
     Active Substance: SOTORASIB
     Route: 065
  5. ADAGRASIB [Concomitant]
     Active Substance: ADAGRASIB
     Indication: K-ras gene mutation
     Route: 065
  6. ADAGRASIB [Concomitant]
     Active Substance: ADAGRASIB
     Indication: Non-small cell lung cancer metastatic
  7. DOCETAXEL [Concomitant]
     Active Substance: DOCETAXEL
     Indication: K-ras gene mutation
     Route: 065
  8. DOCETAXEL [Concomitant]
     Active Substance: DOCETAXEL
     Indication: Non-small cell lung cancer metastatic
  9. CARBOPLATIN [Concomitant]
     Active Substance: CARBOPLATIN
     Indication: K-ras gene mutation
     Route: 065
  10. CARBOPLATIN [Concomitant]
     Active Substance: CARBOPLATIN
     Indication: Non-small cell lung cancer metastatic
  11. PEMETREXED [Concomitant]
     Active Substance: PEMETREXED
     Indication: K-ras gene mutation
     Route: 065
  12. PEMETREXED [Concomitant]
     Active Substance: PEMETREXED
     Indication: Non-small cell lung cancer metastatic
  13. PEMBROLIZUMAB [Concomitant]
     Active Substance: PEMBROLIZUMAB
     Indication: K-ras gene mutation
     Route: 065
  14. PEMBROLIZUMAB [Concomitant]
     Active Substance: PEMBROLIZUMAB
     Indication: Non-small cell lung cancer metastatic

REACTIONS (1)
  - Constipation [Unknown]
